FAERS Safety Report 8557122-3 (Version None)
Quarter: 2012Q3

REPORT INFORMATION
  Report Type: 
  Country: None (occurrence: None)
  Receive Date: 20120726
  Receipt Date: 20120726
  Transmission Date: 20120928
  Serious: No
  Sender: FDA-Public Use
  Company Number: None

PATIENT
  Age: 26 Year
  Sex: Male
  Weight: 81 kg

DRUGS (1)
  1. FENTANYL CITRATE [Suspect]
     Dosage: 25 MCG PER HOUR TOP
     Route: 061
     Dates: start: 20120430, end: 20120521

REACTIONS (1)
  - NIGHTMARE [None]
